FAERS Safety Report 12184961 (Version 1)
Quarter: 2016Q1

REPORT INFORMATION
  Report Type: Spontaneous
  Country: US (occurrence: US)
  Receive Date: 20160316
  Receipt Date: 20160316
  Transmission Date: 20160526
  Serious: Yes (Other)
  Sender: FDA-Public Use
  Company Number: US-MALLINCKRODT-T201600596

PATIENT
  Age: 56 Year
  Sex: Female
  Weight: 53 kg

DRUGS (9)
  1. PHENERGAN [Suspect]
     Active Substance: PROMETHAZINE HYDROCHLORIDE
     Indication: ABDOMINAL DISCOMFORT
     Dosage: 25 MG, PRN
  2. METHADONE [Suspect]
     Active Substance: METHADONE HYDROCHLORIDE
     Dosage: 10 MG; FOUR TIMES DAILY
     Route: 048
     Dates: start: 2004, end: 201509
  3. PANTOPRAZOLE [Suspect]
     Active Substance: PANTOPRAZOLE SODIUM
     Indication: GASTROINTESTINAL DISORDER
     Dosage: 40 MG QD
     Route: 048
     Dates: start: 2009
  4. ALPRAZOLAM. [Concomitant]
     Active Substance: ALPRAZOLAM
     Dosage: UNK
  5. PHENERGAN [Suspect]
     Active Substance: PROMETHAZINE HYDROCHLORIDE
     Indication: NAUSEA
  6. PANTOPRAZOLE [Suspect]
     Active Substance: PANTOPRAZOLE SODIUM
     Dosage: 20 MG QD
     Route: 048
     Dates: end: 201412
  7. METHADONE [Suspect]
     Active Substance: METHADONE HYDROCHLORIDE
     Indication: PAIN
     Dosage: TAPERING DOSE OVER 6 MONTHS
     Route: 048
     Dates: start: 201409, end: 201503
  8. OXYCODONE [Suspect]
     Active Substance: OXYCODONE
     Indication: BREAKTHROUGH PAIN
     Dosage: 20 MG; TWICE DAILY PRN
     Route: 048
     Dates: start: 2014
  9. PROTONIX [Concomitant]
     Active Substance: PANTOPRAZOLE SODIUM
     Dosage: UNK

REACTIONS (9)
  - Sedation [Unknown]
  - Presyncope [Unknown]
  - Gastric pH decreased [Recovering/Resolving]
  - Back pain [Not Recovered/Not Resolved]
  - Insomnia [Unknown]
  - Platelet count increased [Unknown]
  - Electrocardiogram QT prolonged [Unknown]
  - Malaise [Not Recovered/Not Resolved]
  - Myocardial infarction [Unknown]

NARRATIVE: CASE EVENT DATE: 2011
